FAERS Safety Report 5335977-3 (Version None)
Quarter: 2007Q2

REPORT INFORMATION
  Report Type: 
  Country: None (occurrence: None)
  Receive Date: 20070302
  Receipt Date: 20061215
  Transmission Date: 20071010
  Serious: Yes (Other)
  Sender: FDA-Public Use
  Company Number: 2480

PATIENT
  Age: 63 Month

DRUGS (2)
  1. TARGRETIN [Suspect]
     Indication: MYCOSIS FUNGOIDES
     Dosage: 150 MG DAILY PO
     Route: 048
     Dates: start: 20061101, end: 20061212
  2. SIMVASTATIN [Concomitant]

REACTIONS (1)
  - ERYTHEMA MULTIFORME [None]
